FAERS Safety Report 23836610 (Version 1)
Quarter: 2024Q2

REPORT INFORMATION
  Report Type: Spontaneous
  Country: FR (occurrence: FR)
  Receive Date: 20240509
  Receipt Date: 20240509
  Transmission Date: 20240716
  Serious: Yes (Other)
  Sender: FDA-Public Use
  Company Number: FR-OTSUKA-2023_017243

PATIENT
  Age: 18 Year
  Sex: Female

DRUGS (1)
  1. ABILIFY [Suspect]
     Active Substance: ARIPIPRAZOLE
     Indication: Product used for unknown indication
     Dosage: 5 MG
     Route: 065
     Dates: start: 20230620

REACTIONS (3)
  - Abortion [Unknown]
  - Exposure during pregnancy [Unknown]
  - Underdose [Unknown]

NARRATIVE: CASE EVENT DATE: 20230620
